FAERS Safety Report 18155770 (Version 1)
Quarter: 2020Q3

REPORT INFORMATION
  Report Type: Spontaneous
  Country: US (occurrence: US)
  Receive Date: 20200814
  Receipt Date: 20200814
  Transmission Date: 20201103
  Serious: Yes (Hospitalization)
  Sender: FDA-Public Use
  Company Number: None

PATIENT
  Age: 43 Year
  Sex: Male

DRUGS (1)
  1. ARANESP [Suspect]
     Active Substance: DARBEPOETIN ALFA
     Dosage: ?          OTHER STRENGTH:40MCG/0.4ML;OTHER DOSE:40MG/0.4ML;?
     Route: 058
     Dates: start: 202006

REACTIONS (1)
  - Abscess limb [None]

NARRATIVE: CASE EVENT DATE: 20200726
